FAERS Safety Report 22919475 (Version 3)
Quarter: 2023Q4

REPORT INFORMATION
  Report Type: Report from Study
  Country: US (occurrence: US)
  Receive Date: 20230908
  Receipt Date: 20231201
  Transmission Date: 20240110
  Serious: No
  Sender: FDA-Public Use
  Company Number: US-ACADIA PHARMACEUTICALS INC.-ACA-2023-PIM-003559

PATIENT
  Age: 72 Year
  Sex: Male

DRUGS (18)
  1. NUPLAZID [Interacting]
     Active Substance: PIMAVANSERIN TARTRATE
     Indication: Parkinson^s disease psychosis
     Dosage: 10 MILLIGRAM, QD
     Route: 048
     Dates: start: 20230811, end: 20230813
  2. NUPLAZID [Interacting]
     Active Substance: PIMAVANSERIN TARTRATE
     Indication: Hallucination
     Dosage: 10 MILLIGRAM, QD
     Route: 048
  3. NUPLAZID [Interacting]
     Active Substance: PIMAVANSERIN TARTRATE
     Dosage: 20 MILLIGRAM, QD
     Route: 048
  4. NUPLAZID [Interacting]
     Active Substance: PIMAVANSERIN TARTRATE
     Dosage: 10 MILLIGRAM, QD
     Route: 048
  5. NUPLAZID [Interacting]
     Active Substance: PIMAVANSERIN TARTRATE
     Dosage: 10 MILLIGRAM, BID
     Route: 048
  6. NUPLAZID [Interacting]
     Active Substance: PIMAVANSERIN TARTRATE
     Dosage: 20 MILLIGRAM, QD
     Route: 048
  7. MIDODRINE [Concomitant]
     Active Substance: MIDODRINE
  8. CARBIDOPA\LEVODOPA [Concomitant]
     Active Substance: CARBIDOPA\LEVODOPA
  9. NAMENDA [Concomitant]
     Active Substance: MEMANTINE HYDROCHLORIDE
  10. ROPINIROLE [Concomitant]
     Active Substance: ROPINIROLE
  11. ZENPEP [Concomitant]
     Active Substance: PANCRELIPASE AMYLASE\PANCRELIPASE LIPASE\PANCRELIPASE PROTEASE
  12. ATORVASTATIN [Concomitant]
     Active Substance: ATORVASTATIN
  13. CLOPIDOGREL [Concomitant]
     Active Substance: CLOPIDOGREL BISULFATE
  14. ASPIRIN [Concomitant]
     Active Substance: ASPIRIN
     Dosage: 81 MILLIGRAM
  15. VITAMIN D3 [Concomitant]
     Active Substance: CHOLECALCIFEROL
  16. TAMSULOSIN [Concomitant]
     Active Substance: TAMSULOSIN
  17. CALCIUM CARBONATE [Concomitant]
     Active Substance: CALCIUM CARBONATE
  18. ACRIVASTINE [Concomitant]
     Active Substance: ACRIVASTINE

REACTIONS (8)
  - Inappropriate schedule of product administration [Not Recovered/Not Resolved]
  - Hypotension [Not Recovered/Not Resolved]
  - Disorganised speech [Not Recovered/Not Resolved]
  - Drug interaction [Unknown]
  - Drug ineffective [Unknown]
  - Hallucination, visual [Unknown]
  - Hallucination [Not Recovered/Not Resolved]
  - Gait disturbance [Not Recovered/Not Resolved]

NARRATIVE: CASE EVENT DATE: 20230813
